FAERS Safety Report 11795302 (Version 2)
Quarter: 2015Q4

REPORT INFORMATION
  Report Type: Spontaneous
  Country: FR (occurrence: FR)
  Receive Date: 20151202
  Receipt Date: 20151217
  Transmission Date: 20160305
  Serious: Yes (Hospitalization, Other)
  Sender: FDA-Public Use
  Company Number: FR-PFIZER INC-2015410786

PATIENT
  Age: 43 Year
  Sex: Male

DRUGS (6)
  1. METHOTREXATE (METHOTREXATE SODIUM) [Suspect]
     Active Substance: METHOTREXATE SODIUM
     Indication: B-CELL LYMPHOMA
     Dosage: 990 MG + 8900 MG - DAY 1
     Route: 042
     Dates: start: 20151001, end: 20151002
  2. VINCRISTINE SULFATE. [Suspect]
     Active Substance: VINCRISTINE SULFATE
     Indication: B-CELL LYMPHOMA
     Dosage: 2 MG (1.5 MG/M2) - DAY 1
     Route: 042
     Dates: start: 20151001, end: 20151001
  3. DOXORUBICIN HCL [Suspect]
     Active Substance: DOXORUBICIN HYDROCHLORIDE
     Indication: B-CELL LYMPHOMA
     Dosage: 79.25 MG (40 MG/M2), 1X/DAY
     Route: 042
     Dates: start: 20151002, end: 20151002
  4. SOLU-MEDROL [Suspect]
     Active Substance: METHYLPREDNISOLONE SODIUM SUCCINATE
     Indication: B-CELL LYMPHOMA
     Dosage: 39.6 MG (20 MG/M2), 3X/DAY
     Route: 042
     Dates: start: 20151001, end: 20151005
  5. ENDOXAN [Suspect]
     Active Substance: CYCLOPHOSPHAMIDE
     Indication: B-CELL LYMPHOMA
     Dosage: 990 MG (500 MG/M2), 2X/DAY
     Route: 042
     Dates: start: 20151002, end: 20151002
  6. CALCIUM FOLINATE [Concomitant]
     Active Substance: LEUCOVORIN CALCIUM
     Dosage: 23.76 MG (12 MG/M2), 1X/DAY
     Route: 042
     Dates: start: 20151002, end: 20151003

REACTIONS (7)
  - Drug level increased [Recovered/Resolved]
  - Overdose [Recovered/Resolved]
  - Mucosal inflammation [Recovering/Resolving]
  - Thrombocytopenia [Recovered/Resolved]
  - Febrile bone marrow aplasia [Unknown]
  - Cellulitis [Unknown]
  - Acute kidney injury [Recovered/Resolved with Sequelae]

NARRATIVE: CASE EVENT DATE: 20151003
